FAERS Safety Report 5903550-1 (Version None)
Quarter: 2008Q3

REPORT INFORMATION
  Report Type: 
  Country: None (occurrence: None)
  Receive Date: 20080930
  Receipt Date: 20080918
  Transmission Date: 20090109
  Serious: Yes (Hospitalization)
  Sender: FDA-Public Use
  Company Number: US-PFIZER INC-2008080787

PATIENT
  Sex: Female
  Weight: 64.9 kg

DRUGS (8)
  1. CHANTIX [Suspect]
     Indication: SMOKING CESSATION THERAPY
     Dates: start: 20080901, end: 20080901
  2. WARFARIN SODIUM [Concomitant]
  3. FUROSEMIDE [Concomitant]
  4. SOMA [Concomitant]
  5. MORPHINE [Concomitant]
  6. MORPHINE [Concomitant]
  7. PRILOSEC [Concomitant]
  8. LIPITOR [Concomitant]

REACTIONS (7)
  - DEHYDRATION [None]
  - DIARRHOEA [None]
  - HYPERSENSITIVITY [None]
  - HYPERTENSION [None]
  - NAUSEA [None]
  - NERVOUSNESS [None]
  - VOMITING [None]
